FAERS Safety Report 10203920 (Version 1)
Quarter: 2014Q2

REPORT INFORMATION
  Report Type: Spontaneous
  Country: GB (occurrence: GB)
  Receive Date: 20140529
  Receipt Date: 20140529
  Transmission Date: 20141212
  Serious: Yes (Disabling)
  Sender: FDA-Public Use
  Company Number: PHHY2014GB064706

PATIENT
  Age: 53 Year
  Sex: Female
  Weight: 80.74 kg

DRUGS (10)
  1. CANDESARTAN CILEXETIL [Suspect]
     Dates: start: 20140326
  2. BENDROFLUMETHIAZIDE [Concomitant]
     Dates: start: 20140127
  3. BETAMETHASONE VALERATE [Concomitant]
     Dates: start: 20140425
  4. CITALOPRAM [Concomitant]
     Dates: start: 20140127, end: 20140414
  5. CLENIL MODULITE [Concomitant]
     Dates: start: 20140206, end: 20140416
  6. DEXAMETHASONE [Concomitant]
     Dates: start: 20140317, end: 20140504
  7. ESTRADIOL VALERATE [Concomitant]
     Dates: start: 20140207, end: 20140307
  8. ESTRADIOL VALERATE [Concomitant]
     Dates: start: 20140317, end: 20140318
  9. SALBUTAMOL [Concomitant]
     Dates: start: 20140127, end: 20140320
  10. VALSARTAN [Concomitant]
     Dates: start: 20140127, end: 20140320

REACTIONS (3)
  - Listless [Unknown]
  - Dyspnoea [Unknown]
  - Rash macular [Recovering/Resolving]
